FAERS Safety Report 17957592 (Version 1)
Quarter: 2020Q2

REPORT INFORMATION
  Report Type: Spontaneous
  Country: US (occurrence: US)
  Receive Date: 20200629
  Receipt Date: 20200629
  Transmission Date: 20200714
  Serious: No
  Sender: FDA-Public Use
  Company Number: US-TEVA-2020-US-1792819

PATIENT
  Sex: Male

DRUGS (1)
  1. CLONAZEPAM. [Suspect]
     Active Substance: CLONAZEPAM
     Route: 065

REACTIONS (6)
  - Drug ineffective [Unknown]
  - Disorientation [Unknown]
  - Product quality issue [Unknown]
  - Dissociation [Unknown]
  - Limb discomfort [Unknown]
  - Feeling abnormal [Unknown]
